FAERS Safety Report 13681623 (Version 1)
Quarter: 2017Q2

REPORT INFORMATION
  Report Type: Spontaneous
  Country: US (occurrence: US)
  Receive Date: 20170622
  Receipt Date: 20170622
  Transmission Date: 20170830
  Serious: Yes (Other)
  Sender: FDA-Public Use
  Company Number: None

PATIENT
  Age: 70 Year
  Sex: Female
  Weight: 80.1 kg

DRUGS (10)
  1. LEVIMIR INSULIN [Concomitant]
  2. ACETYL-L-CARNITINE [Concomitant]
  3. NITROFURANTOIN MONO-MCR 100MG [Suspect]
     Active Substance: NITROFURANTOIN\NITROFURANTOIN MONOHYDRATE
     Indication: URINARY TRACT INFECTION
     Dosage: ?          QUANTITY:1 CAPSULE(S);?
     Route: 048
     Dates: start: 20150609, end: 20150615
  4. VITAMIN D [Concomitant]
     Active Substance: CHOLECALCIFEROL
  5. MULTIVITAMIN [Concomitant]
     Active Substance: VITAMINS
  6. KRILL OIL [Concomitant]
     Active Substance: DIETARY SUPPLEMENT
  7. ALPHA LIPOIC ACID [Concomitant]
     Active Substance: .ALPHA.-LIPOIC ACID
  8. PROBIOTIC 10 [Concomitant]
  9. HUMULIN R INSULIN [Concomitant]
  10. BENFOTIAMINE [Concomitant]
     Active Substance: BENFOTIAMINE

REACTIONS (6)
  - Pain [None]
  - Arthralgia [None]
  - Disorientation [None]
  - Disturbance in attention [None]
  - Asthenia [None]
  - Therapy cessation [None]

NARRATIVE: CASE EVENT DATE: 20150614
